FAERS Safety Report 21941287 (Version 1)
Quarter: 2023Q1

REPORT INFORMATION
  Report Type: Spontaneous
  Country: CH (occurrence: CH)
  Receive Date: 20230202
  Receipt Date: 20230202
  Transmission Date: 20230417
  Serious: No
  Sender: FDA-Public Use
  Company Number: CH-EXELIXIS-CABO-22054114

PATIENT
  Sex: Male

DRUGS (8)
  1. CABOMETYX [Suspect]
     Active Substance: CABOZANTINIB S-MALATE
     Indication: Renal cell carcinoma
     Dosage: 40 MG, QD
     Route: 048
     Dates: start: 20210819, end: 20211125
  2. CABOMETYX [Suspect]
     Active Substance: CABOZANTINIB S-MALATE
     Indication: Metastases to lung
     Dosage: 20 MG, QD
     Route: 048
     Dates: start: 20211216
  3. CABOMETYX [Suspect]
     Active Substance: CABOZANTINIB S-MALATE
     Indication: Metastases to pleura
     Dosage: 20 MG, QD
     Route: 048
     Dates: start: 20220714
  4. CABOMETYX [Suspect]
     Active Substance: CABOZANTINIB S-MALATE
     Indication: Metastases to lymph nodes
  5. OPDIVO [Concomitant]
     Active Substance: NIVOLUMAB
     Indication: Renal cell carcinoma
     Dosage: 240 MG, Q2WEEKS
     Route: 042
     Dates: start: 20220714
  6. OPDIVO [Concomitant]
     Active Substance: NIVOLUMAB
     Indication: Metastases to lung
  7. OPDIVO [Concomitant]
     Active Substance: NIVOLUMAB
     Indication: Metastases to pleura
  8. OPDIVO [Concomitant]
     Active Substance: NIVOLUMAB
     Indication: Metastases to lymph nodes

REACTIONS (4)
  - Genital erythema [Recovering/Resolving]
  - Hepatic enzyme increased [Recovered/Resolved]
  - Palmar-plantar erythrodysaesthesia syndrome [Recovering/Resolving]
  - Off label use [Unknown]

NARRATIVE: CASE EVENT DATE: 20211006
